FAERS Safety Report 5724965-0 (Version None)
Quarter: 2008Q2

REPORT INFORMATION
  Report Type: 
  Country: None (occurrence: None)
  Receive Date: 20080429
  Receipt Date: 20080429
  Transmission Date: 20081010
  Serious: Yes (Other)
  Sender: FDA-Public Use
  Company Number: None

PATIENT
  Age: 63 Year
  Sex: Female
  Weight: 72.5755 kg

DRUGS (1)
  1. HYDROCHLOROTHIAZIDE [Suspect]
     Indication: BLOOD PRESSURE
     Dosage: 1/2 PILL DAILY PO
     Route: 048

REACTIONS (8)
  - ABASIA [None]
  - BONE PAIN [None]
  - CHEST PAIN [None]
  - CHILLS [None]
  - HEADACHE [None]
  - SELF-MEDICATION [None]
  - TREMOR [None]
  - VOMITING [None]
